FAERS Safety Report 10412568 (Version 1)
Quarter: 2014Q2

REPORT INFORMATION
  Report Type: Spontaneous
  Country: US (occurrence: None)
  Receive Date: 20140604
  Receipt Date: 20140604
  Transmission Date: 20141212
  Serious: Yes (Hospitalization)
  Sender: FDA-Public Use
  Company Number: 20090723CINRY1055

PATIENT
  Age: 62 Year
  Sex: Female
  Weight: 56 kg

DRUGS (6)
  1. CINRYZE [Suspect]
     Indication: HEREDITARY ANGIOEDEMA
     Dosage: 1000 UNIT, EVERY 3-4 DAYS), INTRAVENOUS
     Route: 042
     Dates: start: 200905
  2. CINRYZE [Suspect]
     Indication: PROPHYLAXIS
     Dosage: 1000 UNIT, EVERY 3-4 DAYS), INTRAVENOUS
     Route: 042
     Dates: start: 200905
  3. DANAZOL (DANAZOL) [Concomitant]
  4. PREDISONE (PREDNISONE) [Concomitant]
  5. PROTONIX (PANTOPRAZOLE) [Concomitant]
  6. LANTUS (INSULIN GLARGINE) [Concomitant]

REACTIONS (1)
  - Hereditary angioedema [None]
